FAERS Safety Report 5586048-2 (Version None)
Quarter: 2007Q4

REPORT INFORMATION
  Report Type: 
  Country: None (occurrence: None)
  Receive Date: 20071205
  Receipt Date: 20070703
  Transmission Date: 20080405
  Serious: Yes (Other)
  Sender: FDA-Public Use
  Company Number: HQWYE914005JUL07

PATIENT
  Age: 48 Year
  Sex: Female

DRUGS (3)
  1. EFFEXOR XR [Suspect]
     Indication: DEPRESSION
     Dosage: 75 MG 2 X PER 1 DAY, ORAL
     Route: 048
     Dates: start: 20060518
  2. PROZAC [Concomitant]
  3. XANAX [Concomitant]

REACTIONS (1)
  - SUICIDE ATTEMPT [None]
